FAERS Safety Report 4548709-3 (Version None)
Quarter: 2005Q1

REPORT INFORMATION
  Report Type: 
  Country: None (occurrence: None)
  Receive Date: 20050107
  Receipt Date: 20050107
  Transmission Date: 20050727
  Serious: Yes (Hospitalization)
  Sender: FDA-Public Use
  Company Number: None

PATIENT
  Age: 53 Year
  Sex: Female
  Weight: 84 kg

DRUGS (9)
  1. RANITIDINE [Suspect]
     Indication: PROPHYLAXIS
     Dosage: 50MG    IV  Q6H
     Route: 042
     Dates: start: 20041031, end: 20041108
  2. RANITIDINE [Suspect]
     Indication: SPUTUM ABNORMAL
     Dosage: 50MG    IV  Q6H
     Route: 042
     Dates: start: 20041031, end: 20041108
  3. DESMOPRESSIN ACETATE [Suspect]
     Indication: DIABETES INSIPIDUS
     Dosage: 4MG  IV   PRN
     Route: 042
     Dates: start: 20041031, end: 20041108
  4. ACETAMINOPHEN [Concomitant]
  5. FOSPHENYTOIN SODIUM [Concomitant]
  6. HYDROCORTISONE SODIUM SUCCINATE [Concomitant]
  7. HUMULIN R [Concomitant]
  8. LEVOTHYROXINE SODIUM [Concomitant]
  9. MAGNESIUM HYDROXIDE TAB [Concomitant]

REACTIONS (1)
  - PLATELET COUNT DECREASED [None]
